FAERS Safety Report 4570066-7 (Version None)
Quarter: 2005Q1

REPORT INFORMATION
  Report Type: 
  Country: None (occurrence: None)
  Receive Date: 20050204
  Receipt Date: 20050201
  Transmission Date: 20050727
  Serious: Yes (Other)
  Sender: FDA-Public Use
  Company Number: 200510239EU

PATIENT
  Age: 42 Year
  Sex: Female

DRUGS (3)
  1. ARAVA [Suspect]
     Indication: ARTHRITIS
  2. IBUMETIN [Concomitant]
  3. CELEBRA [Concomitant]
     Dates: end: 20021101

REACTIONS (2)
  - CEREBRAL DISORDER [None]
  - HYPERTENSION [None]
